FAERS Safety Report 6103607-9 (Version None)
Quarter: 2009Q1

REPORT INFORMATION
  Report Type: 
  Country: None (occurrence: None)
  Receive Date: 20090302
  Receipt Date: 20090213
  Transmission Date: 20090719
  Serious: Yes (Other)
  Sender: FDA-Public Use
  Company Number: SPV1-2009-00244

PATIENT
  Age: 9 Year
  Sex: Female
  Weight: 34 kg

DRUGS (2)
  1. DAYTRANA [Suspect]
     Indication: ATTENTION DEFICIT/HYPERACTIVITY DISORDER
     Dosage: 20 MG, 1X/DAY:QD, TRANSDERMAL
     Route: 062
     Dates: start: 20080601, end: 20081201
  2. ZOLOFT [Concomitant]

REACTIONS (6)
  - APPLICATION SITE BLEEDING [None]
  - APPLICATION SITE DERMATITIS [None]
  - APPLICATION SITE ERYTHEMA [None]
  - DEVICE FAILURE [None]
  - PRODUCT QUALITY ISSUE [None]
  - SUICIDE ATTEMPT [None]
